FAERS Safety Report 23722837 (Version 1)
Quarter: 2024Q2

REPORT INFORMATION
  Report Type: Spontaneous
  Country: US (occurrence: US)
  Receive Date: 20240409
  Receipt Date: 20240409
  Transmission Date: 20240716
  Serious: Yes (Hospitalization)
  Sender: FDA-Public Use
  Company Number: US-PFIZER INC-PV202400045248

PATIENT
  Age: 68 Year
  Sex: Female
  Weight: 70.3 kg

DRUGS (86)
  1. CIPROFLOXACIN [Suspect]
     Active Substance: CIPROFLOXACIN
     Dosage: UNK
  2. DOXYCYCLINE HYCLATE [Suspect]
     Active Substance: DOXYCYCLINE HYCLATE
     Dosage: UNK
  3. ENBREL [Suspect]
     Active Substance: ETANERCEPT
     Dosage: UNK
  4. ERYTHROMYCIN [Suspect]
     Active Substance: ERYTHROMYCIN
     Dosage: UNK
  5. METRONIDAZOLE [Suspect]
     Active Substance: METRONIDAZOLE
     Dosage: UNK
  6. METHOTREXATE SODIUM [Suspect]
     Active Substance: METHOTREXATE SODIUM
     Dosage: UNK
  7. SULFASALAZINE [Suspect]
     Active Substance: SULFASALAZINE
     Dosage: UNK
  8. RITUXAN [Suspect]
     Active Substance: RITUXIMAB
     Dosage: UNK
  9. BACTRIM [Suspect]
     Active Substance: SULFAMETHOXAZOLE\TRIMETHOPRIM
     Dosage: UNK
  10. DIAMOX SEQUELS [Suspect]
     Active Substance: ACETAZOLAMIDE
     Dosage: UNK
  11. ABREVA [Suspect]
     Active Substance: DOCOSANOL
     Dosage: UNK
  12. GEODON [Suspect]
     Active Substance: ZIPRASIDONE HYDROCHLORIDE\ZIPRASIDONE MESYLATE
     Dosage: UNK
  13. LYRICA [Suspect]
     Active Substance: PREGABALIN
     Dosage: UNK
  14. ANTIVERT [Suspect]
     Active Substance: MECLIZINE HYDROCHLORIDE
     Dosage: UNK
  15. ULTRAM [Suspect]
     Active Substance: TRAMADOL HYDROCHLORIDE
     Dosage: UNK
  16. SIMPONI [Suspect]
     Active Substance: GOLIMUMAB
     Dosage: UNK
  17. ARAVA [Suspect]
     Active Substance: LEFLUNOMIDE
     Dosage: UNK
  18. COMPAZINE [Suspect]
     Active Substance: PROCHLORPERAZINE MALEATE
     Dosage: UNK
  19. ISORDIL [Suspect]
     Active Substance: ISOSORBIDE DINITRATE
     Dosage: UNK
  20. CELEXA [Suspect]
     Active Substance: CITALOPRAM HYDROBROMIDE
     Dosage: UNK
  21. ZENPEP [Suspect]
     Active Substance: PANCRELIPASE AMYLASE\PANCRELIPASE LIPASE\PANCRELIPASE PROTEASE
     Dosage: UNK
  22. LIALDA [Suspect]
     Active Substance: MESALAMINE
     Dosage: UNK
  23. HUMIRA [Suspect]
     Active Substance: ADALIMUMAB
     Dosage: UNK
  24. PLAQUENIL [Suspect]
     Active Substance: HYDROXYCHLOROQUINE SULFATE
     Dosage: UNK
  25. ACTIFED (PSEUDOEPHEDRINE HYDROCHLORIDE\TRIPROLIDINE HYDROCHLORIDE) [Suspect]
     Active Substance: PSEUDOEPHEDRINE HYDROCHLORIDE\TRIPROLIDINE HYDROCHLORIDE
     Dosage: UNK
  26. ACTEMRA [Suspect]
     Active Substance: TOCILIZUMAB
     Dosage: UNK
  27. ZYRTEC [Suspect]
     Active Substance: CETIRIZINE HYDROCHLORIDE
     Dosage: UNK
  28. DILAUDID [Suspect]
     Active Substance: HYDROMORPHONE HYDROCHLORIDE
     Dosage: UNK
  29. XANAX [Suspect]
     Active Substance: ALPRAZOLAM
     Dosage: UNK
  30. DYAZIDE [Suspect]
     Active Substance: HYDROCHLOROTHIAZIDE\TRIAMTERENE
     Dosage: UNK
  31. TRILEPTAL [Suspect]
     Active Substance: OXCARBAZEPINE
     Dosage: UNK
  32. LASIX [Suspect]
     Active Substance: FUROSEMIDE
     Dosage: UNK
  33. SUDAFED [Suspect]
     Active Substance: PSEUDOEPHEDRINE HYDROCHLORIDE
     Dosage: UNK
  34. KEFLEX [Suspect]
     Active Substance: CEPHALEXIN
     Dosage: UNK
  35. IRON [Suspect]
     Active Substance: IRON
     Dosage: UNK
  36. HEPATITIS B VIRUS VACCINE [Suspect]
     Active Substance: HEPATITIS B VIRUS VACCINE
     Dosage: UNK
  37. COLCHICINE [Suspect]
     Active Substance: COLCHICINE
     Dosage: UNK
  38. POTASSIUM [Suspect]
     Active Substance: POTASSIUM
     Dosage: UNK
  39. DICHLOROBENZYL ALCOHOL [Suspect]
     Active Substance: DICHLOROBENZYL ALCOHOL
     Dosage: UNK
  40. CYCLOSPORINE [Suspect]
     Active Substance: CYCLOSPORINE
     Dosage: UNK
  41. CETYLPYRIDINIUM CHLORIDE [Suspect]
     Active Substance: CETYLPYRIDINIUM CHLORIDE
     Dosage: UNK
  42. AMPICILLIN [Suspect]
     Active Substance: AMPICILLIN
     Dosage: UNK
  43. PROCHLORPERAZINE EDISYLATE [Suspect]
     Active Substance: PROCHLORPERAZINE EDISYLATE
     Dosage: UNK
  44. RESTASIS [Concomitant]
     Active Substance: CYCLOSPORINE
     Dosage: UNK
  45. LAMICTAL [Concomitant]
     Active Substance: LAMOTRIGINE
     Dosage: UNK
  46. PREVACID [Concomitant]
     Active Substance: LANSOPRAZOLE
     Dosage: UNK
  47. HYDROCORTISONE [Concomitant]
     Active Substance: HYDROCORTISONE
     Dosage: UNK
  48. SYNTHROID [Concomitant]
     Active Substance: LEVOTHYROXINE SODIUM
     Dosage: UNK
  49. INFLUENZA VIRUS VACCINE [Concomitant]
     Active Substance: INFLUENZA VIRUS VACCINE
     Dosage: UNK
  50. CEFIXIME [Concomitant]
     Active Substance: CEFIXIME
     Dosage: UNK
  51. CYANOCOBALAMIN [Concomitant]
     Active Substance: CYANOCOBALAMIN
     Dosage: UNK
  52. TYLENOL [Concomitant]
     Active Substance: ACETAMINOPHEN
     Dosage: UNK
  53. CHOLECALCIFEROL [Concomitant]
     Active Substance: CHOLECALCIFEROL
     Dosage: UNK
  54. CALCIUM CARBONATE [Concomitant]
     Active Substance: CALCIUM CARBONATE
     Dosage: UNK
  55. BUDESONIDE [Concomitant]
     Active Substance: BUDESONIDE
     Dosage: UNK
  56. TAMIFLU [Concomitant]
     Active Substance: OSELTAMIVIR PHOSPHATE
     Dosage: UNK
  57. VITAMIN B12 [Concomitant]
     Active Substance: CYANOCOBALAMIN
     Dosage: UNK
  58. RETINA [Concomitant]
     Dosage: UNK
  59. ADVAIR HFA [Concomitant]
     Active Substance: FLUTICASONE PROPIONATE\SALMETEROL XINAFOATE
     Dosage: UNK
  60. PHENERGAN [Concomitant]
     Active Substance: PROMETHAZINE HYDROCHLORIDE
     Dosage: UNK
  61. NORCO [Concomitant]
     Active Substance: ACETAMINOPHEN\HYDROCODONE BITARTRATE
     Dosage: UNK
  62. FOSAMAX [Concomitant]
     Active Substance: ALENDRONATE SODIUM
     Dosage: UNK
  63. DEXAMETHASONE [Concomitant]
     Active Substance: DEXAMETHASONE
     Dosage: UNK
  64. VITAMIN D3 [Concomitant]
     Active Substance: CHOLECALCIFEROL
     Dosage: UNK
  65. PNEUMOCOCCAL VACCINE POLYVALENT [Concomitant]
     Active Substance: PNEUMOCOCCAL VACCINE POLYVALENT
     Dosage: UNK
  66. SYSTANE (HYPROMELLOSE 2910 (4000 MPA.S)) [Concomitant]
     Active Substance: HYPROMELLOSE 2910 (4000 MPA.S)
     Dosage: UNK
  67. PROTOPIC [Concomitant]
     Active Substance: TACROLIMUS
     Dosage: UNK
  68. MEDIQUE MEDI PHENYL [Concomitant]
     Dosage: UNK
  69. MEDIQUE DIAMODE [Concomitant]
     Active Substance: LOPERAMIDE HYDROCHLORIDE
     Dosage: UNK
  70. MOBIC [Concomitant]
     Active Substance: MELOXICAM
     Dosage: UNK
  71. ISOPTO TEARS [HYPROMELLOSE] [Concomitant]
     Dosage: UNK
  72. HYPROMELLOSES [Concomitant]
     Active Substance: HYPROMELLOSES
     Dosage: UNK
  73. ZANAFLEX [Concomitant]
     Active Substance: TIZANIDINE HYDROCHLORIDE
     Dosage: UNK
  74. NEXIUM I.V. [Concomitant]
     Active Substance: ESOMEPRAZOLE SODIUM
     Dosage: UNK
  75. SINGULAIR [Concomitant]
     Active Substance: MONTELUKAST SODIUM
     Dosage: UNK
  76. ZANTAC [Concomitant]
     Active Substance: RANITIDINE HYDROCHLORIDE
     Dosage: UNK
  77. FOLIC ACID [Concomitant]
     Active Substance: FOLIC ACID
     Dosage: UNK
  78. ZADITOR [Concomitant]
     Active Substance: KETOTIFEN FUMARATE
     Dosage: UNK
  79. BACTROBAN [Concomitant]
     Active Substance: MUPIROCIN CALCIUM
     Dosage: UNK
  80. VICODIN [Concomitant]
     Active Substance: ACETAMINOPHEN\HYDROCODONE BITARTRATE
     Dosage: UNK
  81. NEXIUM 24HR [Concomitant]
     Active Substance: ESOMEPRAZOLE MAGNESIUM
     Dosage: UNK
  82. PIPERACILLIN AND TAZOBACTAM [Concomitant]
     Active Substance: PIPERACILLIN SODIUM\TAZOBACTAM SODIUM
     Dosage: UNK
  83. VITAMINS NOS [Concomitant]
     Active Substance: VITAMINS
     Dosage: UNK
  84. ZOLOFT [Concomitant]
     Active Substance: SERTRALINE HYDROCHLORIDE
     Dosage: UNK
  85. ZINC [Concomitant]
     Active Substance: PYRITHIONE ZINC\ZINC\ZINC CHLORIDE
     Dosage: UNK
  86. REFRESH OPTIVE ADVANCED [Concomitant]
     Active Substance: CARBOXYMETHYLCELLULOSE SODIUM\GLYCERIN\POLYSORBATE 80
     Dosage: UNK

REACTIONS (56)
  - Rheumatoid arthritis [Unknown]
  - Intestinal obstruction [Unknown]
  - Interstitial lung disease [Unknown]
  - Hallucination [Unknown]
  - Loss of consciousness [Unknown]
  - Sjogren^s syndrome [Unknown]
  - Anaphylactic reaction [Unknown]
  - Haemorrhagic diathesis [Unknown]
  - Musculoskeletal stiffness [Unknown]
  - Ear pain [Unknown]
  - Skin warm [Unknown]
  - Arthralgia [Unknown]
  - Skin disorder [Unknown]
  - Back pain [Unknown]
  - Joint swelling [Unknown]
  - Nausea [Unknown]
  - Hypoaesthesia [Unknown]
  - Oedema [Unknown]
  - Wound [Unknown]
  - Dizziness [Unknown]
  - Abdominal discomfort [Unknown]
  - Contusion [Unknown]
  - Drug intolerance [Unknown]
  - Dysphoria [Unknown]
  - Fatigue [Unknown]
  - Neck pain [Unknown]
  - Rash [Unknown]
  - Sneezing [Unknown]
  - Dry skin [Unknown]
  - Pain [Unknown]
  - Photophobia [Unknown]
  - Gait disturbance [Unknown]
  - Erythema [Unknown]
  - Osteoarthritis [Unknown]
  - Asthenia [Unknown]
  - Appetite disorder [Unknown]
  - Dyspnoea [Unknown]
  - Vomiting [Unknown]
  - Drug hypersensitivity [Unknown]
  - Pruritus [Unknown]
  - Myalgia [Unknown]
  - Thinking abnormal [Unknown]
  - Weight decreased [Unknown]
  - Wheezing [Unknown]
  - Diarrhoea [Unknown]
  - Dysphagia [Unknown]
  - Abdominal pain [Unknown]
  - Oral pain [Unknown]
  - Rhinorrhoea [Unknown]
  - Arthritis infective [Unknown]
  - Chills [Unknown]
  - Constipation [Unknown]
  - Visual impairment [Unknown]
  - Headache [Unknown]
  - Blister [Unknown]
  - Tenderness [Unknown]

NARRATIVE: CASE EVENT DATE: 20110111
